FAERS Safety Report 9306738 (Version 1)
Quarter: 2013Q2

REPORT INFORMATION
  Report Type: Spontaneous
  Country: US (occurrence: US)
  Receive Date: 20130523
  Receipt Date: 20130523
  Transmission Date: 20140414
  Serious: No
  Sender: FDA-Public Use
  Company Number: US-ASTRAZENECA-2013SE33581

PATIENT
  Age: 54 Year
  Sex: Female

DRUGS (2)
  1. LISINOPRIL [Suspect]
     Route: 048
  2. AMLODIPINE [Suspect]
     Route: 065

REACTIONS (2)
  - Dry throat [Unknown]
  - Headache [Unknown]
